FAERS Safety Report 5905100-2 (Version None)
Quarter: 2008Q3

REPORT INFORMATION
  Report Type: 
  Country: None (occurrence: None)
  Receive Date: 20080909
  Receipt Date: 20071211
  Transmission Date: 20090109
  Serious: Yes (Death, Hospitalization)
  Sender: FDA-Public Use
  Company Number: 163-20785-07101622

PATIENT
  Age: 72 Year
  Sex: Female

DRUGS (17)
  1. THALOMID [Suspect]
     Indication: MULTIPLE MYELOMA
     Dosage: 50 MG, 1 IN 1 D, ORAL
     Route: 047
     Dates: start: 20070330, end: 20070508
  2. SENNA (SENNA) [Concomitant]
  3. COLACE (DOCUSATE SODIUM) [Concomitant]
  4. TOPROL-XL [Concomitant]
  5. NEXIUM [Concomitant]
  6. PREDNISONE [Concomitant]
  7. ACYCLOVIR [Concomitant]
  8. POTASSIUM CHLORIDE [Concomitant]
  9. OXYCODONE HCL [Concomitant]
  10. ATIVAN [Concomitant]
  11. LASIX [Concomitant]
  12. LEXAPRO [Concomitant]
  13. AMBIEN [Concomitant]
  14. COMPAZINE [Concomitant]
  15. COUMADIN [Concomitant]
  16. CYCLOPHOSPHAMIDE [Concomitant]
  17. BORTEZOMIB (BORTEZOMIB) [Concomitant]

REACTIONS (13)
  - ANOREXIA [None]
  - BLOOD LACTATE DEHYDROGENASE INCREASED [None]
  - BRAIN NATRIURETIC PEPTIDE INCREASED [None]
  - CANDIDIASIS [None]
  - DIZZINESS [None]
  - DYSPNOEA [None]
  - EPISTAXIS [None]
  - EXCORIATION [None]
  - FATIGUE [None]
  - JAUNDICE [None]
  - MULTIPLE MYELOMA [None]
  - PLEURAL EFFUSION [None]
  - RASH [None]
